FAERS Safety Report 9870044 (Version 4)
Quarter: 2014Q2

REPORT INFORMATION
  Report Type: Spontaneous
  Country: US (occurrence: US)
  Receive Date: 20140205
  Receipt Date: 20140610
  Transmission Date: 20141212
  Serious: No
  Sender: FDA-Public Use
  Company Number: US-PFIZER INC-2014030312

PATIENT
  Age: 80 Year
  Sex: Female
  Weight: 60.32 kg

DRUGS (6)
  1. ADVIL [Suspect]
     Indication: CARDIAC DISORDER
     Dosage: 200 MG, AS NEEDED
     Route: 048
     Dates: start: 201401
  2. ADVIL [Suspect]
     Indication: HEART RATE INCREASED
  3. ADVIL [Suspect]
     Indication: TACHYCARDIA
     Dosage: UNK
     Dates: start: 2014, end: 2014
  4. CHLORDIAZEPOXIDE [Concomitant]
     Dosage: UNK
  5. CELEBREX [Concomitant]
     Dosage: UNK
  6. DIGOXIN [Concomitant]
     Dosage: 0.25 MG, UNK

REACTIONS (4)
  - Poor quality drug administered [Unknown]
  - Off label use [Unknown]
  - Drug ineffective for unapproved indication [Unknown]
  - Product commingling [Unknown]
